FAERS Safety Report 4374673-6 (Version None)
Quarter: 2004Q2

REPORT INFORMATION
  Report Type: 
  Country: None (occurrence: None)
  Receive Date: 20040603
  Receipt Date: 20040520
  Transmission Date: 20050107
  Serious: No
  Sender: FDA-Public Use
  Company Number: JP_040403021

PATIENT
  Age: 66 Year
  Sex: Male
  Weight: 40 kg

DRUGS (5)
  1. GEMZAR [Suspect]
     Indication: LUNG CARCINOMA CELL TYPE UNSPECIFIED RECURRENT
     Dosage: 1300 MG OTHER
     Route: 050
     Dates: start: 20040223, end: 20040223
  2. NAVELBINE [Concomitant]
  3. SEROTONE (AZASETRON HYDROCHLORIDE) [Concomitant]
  4. VOLTAREN [Concomitant]
  5. FERRUM (FERROUS FUMARATE) [Concomitant]

REACTIONS (1)
  - DRUG ERUPTION [None]
